FAERS Safety Report 7545234-2 (Version None)
Quarter: 2011Q2

REPORT INFORMATION
  Report Type: 
  Country: None (occurrence: None)
  Receive Date: 20110610
  Receipt Date: 20110610
  Transmission Date: 20111010
  Serious: No
  Sender: FDA-Public Use
  Company Number: None

PATIENT
  Sex: Female
  Weight: 55.2 kg

DRUGS (3)
  1. SPIRONOLACTONE [Concomitant]
  2. LOESTRIN 24 FE [Suspect]
     Indication: CONTRACEPTION
     Dosage: 1MG/20MCG 1 TAB DAILY PO - 047
     Route: 048
     Dates: start: 20110329, end: 20110412
  3. ZYRTEC [Concomitant]

REACTIONS (2)
  - DRUG HYPERSENSITIVITY [None]
  - NO REACTION ON PREVIOUS EXPOSURE TO DRUG [None]
